FAERS Safety Report 20824385 (Version 1)
Quarter: 2022Q2

REPORT INFORMATION
  Report Type: Spontaneous
  Country: KR (occurrence: KR)
  Receive Date: 20220513
  Receipt Date: 20220513
  Transmission Date: 20220721
  Serious: No
  Sender: FDA-Public Use
  Company Number: KR-ALKEM LABORATORIES LIMITED-KR-ALKEM-2022-02371

PATIENT
  Age: 71 Year
  Sex: Male

DRUGS (2)
  1. COLCHICINE [Suspect]
     Active Substance: COLCHICINE
     Indication: Gout
     Dosage: 1.2 MILLIGRAM, OD
     Route: 065
  2. ROSUVASTATIN [Suspect]
     Active Substance: ROSUVASTATIN
     Indication: Gout
     Dosage: UNK
     Route: 065

REACTIONS (3)
  - Myopathy [Unknown]
  - Blood creatine phosphokinase increased [Unknown]
  - Drug interaction [Unknown]
